FAERS Safety Report 25572068 (Version 1)
Quarter: 2025Q3

REPORT INFORMATION
  Report Type: Spontaneous
  Country: CN (occurrence: CN)
  Receive Date: 20250717
  Receipt Date: 20250717
  Transmission Date: 20251021
  Serious: Yes (Life-Threatening, Other)
  Sender: BAYER HEALTHCARE PHARMACEUTICALS INC.
  Company Number: CN-BAYER-2025A094357

PATIENT
  Age: 70 Year
  Sex: Female
  Weight: 58 kg

DRUGS (2)
  1. ULTRAVIST [Suspect]
     Active Substance: IOPROMIDE
     Indication: Computerised tomogram heart
     Route: 042
     Dates: start: 20250706, end: 20250706
  2. ULTRAVIST [Suspect]
     Active Substance: IOPROMIDE
     Indication: Abdominal pain upper

REACTIONS (6)
  - Anaphylactic shock [Recovering/Resolving]
  - Blood pressure decreased [Recovering/Resolving]
  - Oxygen saturation decreased [Recovered/Resolved]
  - Generalised oedema [Recovering/Resolving]
  - Rash pruritic [Recovered/Resolved]
  - Feeling hot [Recovered/Resolved]

NARRATIVE: CASE EVENT DATE: 20250706
